FAERS Safety Report 12392974 (Version 1)
Quarter: 2016Q2

REPORT INFORMATION
  Report Type: Spontaneous
  Country: US (occurrence: US)
  Receive Date: 20160523
  Receipt Date: 20160523
  Transmission Date: 20160815
  Serious: No
  Sender: FDA-Public Use
  Company Number: US-PFIZER INC-2016234534

PATIENT
  Age: 63 Year
  Sex: Female

DRUGS (4)
  1. PERCOCET [Suspect]
     Active Substance: ACETAMINOPHEN\OXYCODONE HYDROCHLORIDE
     Indication: ARTHRALGIA
     Dosage: 1 DF, AS NEEDED( PARACETAMOL: 325MG, OXYCODONE HYDROCHLORIDE: 5MG,BID/ AS NEEDED)
     Route: 048
  2. MEDROL [Suspect]
     Active Substance: METHYLPREDNISOLONE
     Indication: ARTHRALGIA
     Dosage: UNK
  3. PERCOCET [Suspect]
     Active Substance: ACETAMINOPHEN\OXYCODONE HYDROCHLORIDE
     Indication: MUSCULOSKELETAL PAIN
  4. MEDROL [Suspect]
     Active Substance: METHYLPREDNISOLONE
     Indication: MUSCULOSKELETAL PAIN

REACTIONS (1)
  - Drug effect incomplete [Unknown]
